FAERS Safety Report 17077097 (Version 1)
Quarter: 2019Q4

REPORT INFORMATION
  Report Type: Spontaneous
  Country: US (occurrence: US)
  Receive Date: 20191126
  Receipt Date: 20191126
  Transmission Date: 20200122
  Serious: No
  Sender: FDA-Public Use
  Company Number: US-SEPTODONT-201905410

PATIENT
  Age: 62 Year
  Sex: Female

DRUGS (1)
  1. VIVACAINE [Suspect]
     Active Substance: BUPIVACAINE HYDROCHLORIDE\EPINEPHRINE BITARTRATE
     Indication: DENTAL LOCAL ANAESTHESIA
     Dosage: MORE THAN 1 CARPULE
     Route: 004
     Dates: start: 201907, end: 201907

REACTIONS (1)
  - Drug ineffective [Unknown]

NARRATIVE: CASE EVENT DATE: 201907
